FAERS Safety Report 10745614 (Version 1)
Quarter: 2015Q1

REPORT INFORMATION
  Report Type: Spontaneous
  Country: US (occurrence: None)
  Receive Date: 20150114
  Receipt Date: 20150114
  Transmission Date: 20150721
  Serious: Yes (Hospitalization)
  Sender: FDA-Public Use
  Company Number: 2182845

PATIENT
  Age: 48 Year
  Sex: Female

DRUGS (10)
  1. GEMCITABINE [Suspect]
     Active Substance: GEMCITABINE\GEMCITABINE HYDROCHLORIDE
     Indication: SOFT TISSUE SARCOMA
     Dosage: 900 MG/M2 MILLIGRAM(S)/SQ. METER (CYCLICAL) INTRAVENOUS DRIP
     Route: 041
     Dates: start: 20131108
  2. INVESTIGATIONAL DRUG [Suspect]
     Active Substance: INVESTIGATIONAL PRODUCT
     Indication: SOFT TISSUE SARCOMA
     Dosage: 8 MG/KG MILLIGRAM(S)/KILOGRAM (CYCLICAL) INTRAVENOUS DRIP
     Route: 041
     Dates: start: 20131108
  3. ONDANSETRON [Concomitant]
     Active Substance: ONDANSETRON
  4. LORAZEPAM. [Concomitant]
     Active Substance: LORAZEPAM
  5. FUROSEMIDE. [Concomitant]
     Active Substance: FUROSEMIDE
  6. PROCHLORPERAZINE EDISYLATE. [Concomitant]
     Active Substance: PROCHLORPERAZINE EDISYLATE
  7. RIVAROXABAN [Concomitant]
     Active Substance: RIVAROXABAN
  8. DOCETAXEL. [Suspect]
     Active Substance: DOCETAXEL
     Indication: SOFT TISSUE SARCOMA
     Dosage: 75 MG/M2 MILLIGRAM(S)/SQ. METER (CYCLICAL), INTRAVENOUS DRIP
     Route: 041
     Dates: start: 20131115, end: 20131209
  9. ONDANSETRON [Concomitant]
     Active Substance: ONDANSETRON
  10. BACTRIM [Concomitant]
     Active Substance: SULFAMETHOXAZOLE\TRIMETHOPRIM

REACTIONS (1)
  - Cellulitis [None]

NARRATIVE: CASE EVENT DATE: 20131213
